FAERS Safety Report 4317423-1 (Version None)
Quarter: 2004Q1

REPORT INFORMATION
  Report Type: 
  Country: None (occurrence: None)
  Receive Date: 20040312
  Receipt Date: 20040303
  Transmission Date: 20041129
  Serious: Yes (Hospitalization)
  Sender: FDA-Public Use
  Company Number: 200410035BYL

PATIENT
  Age: 66 Year
  Sex: Male
  Weight: 56 kg

DRUGS (1)
  1. GLUCOBAY [Suspect]
     Indication: DIABETES MELLITUS
     Dosage: 300 MG, TOTAL DAILY, ORAL
     Route: 048
     Dates: end: 20040109

REACTIONS (1)
  - PNEUMATOSIS CYSTOIDES INTESTINALIS [None]
